FAERS Safety Report 20304113 (Version 1)
Quarter: 2022Q1

REPORT INFORMATION
  Report Type: Spontaneous
  Country: DE (occurrence: DE)
  Receive Date: 20220106
  Receipt Date: 20220106
  Transmission Date: 20220424
  Serious: Yes (Hospitalization)
  Sender: FDA-Public Use
  Company Number: DE-ADRED-06889-01

PATIENT
  Age: 62 Year
  Sex: Male
  Weight: 56 kg

DRUGS (7)
  1. FLUOROURACIL [Suspect]
     Active Substance: FLUOROURACIL
     Indication: Product used for unknown indication
     Dosage: PAUSED ON THE NINTH OF JUNE DUE TO ADVERSE EVENT, SOLUTION FOR INJECTION/INFUSION
     Route: 042
  2. AMLODIPINE BESYLATE [Concomitant]
     Active Substance: AMLODIPINE BESYLATE
     Indication: Product used for unknown indication
     Dosage: 10 MILLIGRAM, QD, 10 MG, 0-0-1-0, TABLETTEN
     Route: 048
  3. ALLOPURINOL [Concomitant]
     Active Substance: ALLOPURINOL
     Dosage: 100 MILLIGRAM, QD, 100 MG, 1-0-0-0, TABLETTEN
     Route: 048
  4. METOPROLOL [Concomitant]
     Active Substance: METOPROLOL
     Dosage: 47.5 MILLIGRAM, QD, 47.5 MG, 1-0-0-0, RETARD-TABLETTEN
     Route: 048
  5. INSULIN GLULISINE [Concomitant]
     Active Substance: INSULIN GLULISINE
     Dosage: 300 IE/3ML, NACH SCHEMA, FERTIGSPRITZEN
     Route: 058
  6. INSULIN GLARGINE [Concomitant]
     Active Substance: INSULIN GLARGINE
     Dosage: 300 IE/3ML, 0-0-0-5, FERTIGSPRITZEN
     Route: 058
  7. PANTOPRAZOLE SODIUM [Concomitant]
     Active Substance: PANTOPRAZOLE SODIUM
     Dosage: 40 MILLIGRAM, QD, 40 MG, 1-0-0-0, TABLETTEN
     Route: 048

REACTIONS (3)
  - General physical health deterioration [Unknown]
  - Abdominal pain upper [Unknown]
  - Decreased appetite [Unknown]
